FAERS Safety Report 8764400 (Version 1)
Quarter: 2012Q4

REPORT INFORMATION
  Report Type: 
  Country: HK (occurrence: HK)
  Receive Date: 20120831
  Receipt Date: 20120831
  Transmission Date: 20130627
  Serious: Yes (Death, Other)
  Sender: FDA-Public Use
  Company Number: PHHY2012HK075406

PATIENT
  Age: 10 Month
  Sex: Female

DRUGS (11)
  1. CICLOSPORIN [Suspect]
     Indication: PROPHYLAXIS AGAINST GRAFT VERSUS HOST DISEASE
  2. MYCOPHENOLATE MOFETIL [Suspect]
     Indication: PROPHYLAXIS AGAINST GRAFT VERSUS HOST DISEASE
  3. INFLIXIMAB [Suspect]
     Indication: IMMUNOSUPPRESSANT DRUG THERAPY
  4. STEROIDS NOS [Suspect]
     Indication: IMMUNOSUPPRESSANT DRUG THERAPY
  5. CYCLOPHOSPHAMIDE [Concomitant]
     Indication: SURGICAL PRECONDITIONING
  6. FLUCONAZOLE [Concomitant]
     Indication: ANTIFUNGAL PROPHYLAXIS
  7. ACICLOVIR [Concomitant]
  8. CO-TRIMOXAZOLE [Concomitant]
  9. BUSULFAN [Concomitant]
     Indication: SURGICAL PRECONDITIONING
  10. MELPHALAN [Concomitant]
     Indication: SURGICAL PRECONDITIONING
  11. PARENTERAL NUTRITION [Suspect]
     Indication: CACHEXIA

REACTIONS (9)
  - Idiopathic pneumonia syndrome [Fatal]
  - Acinetobacter infection [Unknown]
  - Viral infection [Not Recovered/Not Resolved]
  - Norovirus test positive [Not Recovered/Not Resolved]
  - Diarrhoea [Unknown]
  - Cachexia [Unknown]
  - Acute graft versus host disease in skin [Unknown]
  - Acute graft versus host disease in liver [Unknown]
  - Acute graft versus host disease in intestine [Unknown]
